FAERS Safety Report 20664512 (Version 1)
Quarter: 2022Q2

REPORT INFORMATION
  Report Type: Spontaneous
  Country: US (occurrence: US)
  Receive Date: 20220401
  Receipt Date: 20220401
  Transmission Date: 20220721
  Serious: No
  Sender: FDA-Public Use
  Company Number: US-BAYER-2022A047869

PATIENT
  Age: 83 Year
  Sex: Female

DRUGS (1)
  1. ADEMPAS [Suspect]
     Active Substance: RIOCIGUAT
     Indication: Pulmonary hypertension
     Dosage: 1.5 MG, TID
     Dates: start: 20220211

REACTIONS (2)
  - Abdominal discomfort [Not Recovered/Not Resolved]
  - Dizziness [Recovering/Resolving]
